FAERS Safety Report 4713944-8 (Version None)
Quarter: 2005Q3

REPORT INFORMATION
  Report Type: 
  Country: None (occurrence: None)
  Receive Date: 20050713
  Receipt Date: 20050629
  Transmission Date: 20060218
  Serious: Yes (Hospitalization)
  Sender: FDA-Public Use
  Company Number: DE_050616220

PATIENT
  Age: 58 Year
  Sex: Male
  Weight: 108 kg

DRUGS (3)
  1. ZYPREXA [Suspect]
     Indication: MANIA
     Dosage: 10 MG/1
     Dates: start: 20050608, end: 20050608
  2. NEOTRI [Concomitant]
  3. MELPERON [Concomitant]

REACTIONS (7)
  - CEREBRAL VENTRICLE DILATATION [None]
  - FALL [None]
  - HEPATIC STEATOSIS [None]
  - LOSS OF CONSCIOUSNESS [None]
  - SKIN DISCOLOURATION [None]
  - SYNCOPE [None]
  - TREMOR [None]
